FAERS Safety Report 7404309-9 (Version None)
Quarter: 2011Q2

REPORT INFORMATION
  Report Type: 
  Country: None (occurrence: None)
  Receive Date: 20110408
  Receipt Date: 20110322
  Transmission Date: 20111010
  Serious: Yes (Other)
  Sender: FDA-Public Use
  Company Number: SE-GENZYME-THYM-1002396

PATIENT
  Age: 32 Year
  Sex: Male

DRUGS (1)
  1. THYMOGLOBULIN [Suspect]
     Indication: BONE MARROW CONDITIONING REGIMEN

REACTIONS (4)
  - EPSTEIN-BARR VIRUS ANTIBODY POSITIVE [None]
  - ADENOVIRUS TEST POSITIVE [None]
  - CYTOMEGALOVIRUS TEST POSITIVE [None]
  - GRAFT VERSUS HOST DISEASE [None]
